FAERS Safety Report 13615817 (Version 1)
Quarter: 2017Q2

REPORT INFORMATION
  Report Type: Report from Study
  Country: US (occurrence: US)
  Receive Date: 20170606
  Receipt Date: 20170606
  Transmission Date: 20170830
  Serious: Yes (Life-Threatening)
  Sender: FDA-Public Use
  Company Number: US-BION-006369

PATIENT
  Age: 21 Year
  Sex: Male

DRUGS (6)
  1. GABAPENTIN. [Suspect]
     Active Substance: GABAPENTIN
  2. CITALOPRAM [Suspect]
     Active Substance: CITALOPRAM HYDROBROMIDE
  3. RISPERIDONE. [Suspect]
     Active Substance: RISPERIDONE
  4. ZOLPIDEM/ZOLPIDEM TARTRATE [Suspect]
     Active Substance: ZOLPIDEM\ZOLPIDEM TARTRATE
  5. LOPERAMIDE UNKNOWN PRODUCT [Suspect]
     Active Substance: LOPERAMIDE
  6. TEMAZEPAM. [Suspect]
     Active Substance: TEMAZEPAM

REACTIONS (5)
  - Lethargy [Unknown]
  - Tachycardia [Unknown]
  - Suicide attempt [Unknown]
  - Conduct disorder [Unknown]
  - Somnolence [Unknown]
